FAERS Safety Report 6370003-9 (Version None)
Quarter: 2009Q3

REPORT INFORMATION
  Report Type: 
  Country: None (occurrence: None)
  Receive Date: 20090923
  Receipt Date: 20071126
  Transmission Date: 20100115
  Serious: No
  Sender: FDA-Public Use
  Company Number: US-ASTRAZENECA-2006UW07711

PATIENT
  Age: 41 Year
  Sex: Female
  Weight: 122.9 kg

DRUGS (24)
  1. SEROQUEL [Suspect]
     Indication: BIPOLAR DISORDER
     Route: 048
     Dates: start: 20020901, end: 20040201
  2. SEROQUEL [Suspect]
     Indication: DEPRESSION
     Route: 048
     Dates: start: 20020901, end: 20040201
  3. SEROQUEL [Suspect]
     Indication: ANXIETY
     Route: 048
     Dates: start: 20020901, end: 20040201
  4. SEROQUEL [Suspect]
     Route: 048
     Dates: start: 20011227
  5. SEROQUEL [Suspect]
     Route: 048
     Dates: start: 20011227
  6. SEROQUEL [Suspect]
     Route: 048
     Dates: start: 20011227
  7. PROZAC [Concomitant]
     Dates: start: 19940101
  8. CYMBALTA [Concomitant]
     Dates: start: 20060101
  9. EFFEXOR XR [Concomitant]
  10. DEXEDRINE [Concomitant]
  11. DEXEDRINE EXTENDED RELEASE [Concomitant]
  12. TOPAMAX [Concomitant]
  13. METFORMIN HCL [Concomitant]
  14. WELLBUTRIN [Concomitant]
  15. LISINOPRIL [Concomitant]
  16. PRAZSOIN HCL [Concomitant]
  17. IBUPROFEN [Concomitant]
  18. TRIAMCINOLONE [Concomitant]
  19. LIPITOR [Concomitant]
  20. ASPIRIN [Concomitant]
  21. LAMICTAL [Concomitant]
  22. SIMVASTATIN [Concomitant]
  23. KETOCONAZOLE [Concomitant]
  24. NABUMETONE [Concomitant]

REACTIONS (9)
  - DIABETES MELLITUS [None]
  - DYSFUNCTIONAL UTERINE BLEEDING [None]
  - DYSPEPSIA [None]
  - ECZEMA [None]
  - PELVIC MASS [None]
  - SEBORRHOEIC DERMATITIS [None]
  - SYNOVIAL CYST [None]
  - VISUAL IMPAIRMENT [None]
  - VOMITING [None]
